FAERS Safety Report 8279752-9 (Version None)
Quarter: 2012Q2

REPORT INFORMATION
  Report Type: 
  Country: None (occurrence: None)
  Receive Date: 20120412
  Receipt Date: 20110707
  Transmission Date: 20120825
  Serious: No
  Sender: FDA-Public Use
  Company Number: US-ASTRAZENECA-2011SE40567

PATIENT
  Age: 33 Year
  Sex: Female
  Weight: 54.4 kg

DRUGS (8)
  1. MAXALT [Concomitant]
     Indication: FIBROMYALGIA
  2. LYRICA [Concomitant]
     Indication: FIBROMYALGIA
  3. LORTAB [Concomitant]
     Indication: BACK DISORDER
  4. NEXIUM [Suspect]
     Indication: GASTROOESOPHAGEAL REFLUX DISEASE
     Route: 048
  5. XANAX [Concomitant]
     Indication: DEPRESSION
  6. PREVACID [Concomitant]
     Indication: COLITIS ULCERATIVE
  7. LORTAB [Concomitant]
     Indication: OSTEOARTHRITIS
  8. PREVACID [Concomitant]
     Indication: FIBROMYALGIA

REACTIONS (3)
  - GENERAL PHYSICAL HEALTH DETERIORATION [None]
  - WEIGHT DECREASED [None]
  - DRUG DOSE OMISSION [None]
